FAERS Safety Report 8836310 (Version 5)
Quarter: 2012Q4

REPORT INFORMATION
  Report Type: 
  Country: DE (occurrence: DE)
  Receive Date: 20121011
  Receipt Date: 20121213
  Transmission Date: 20130627
  Serious: Yes (Life-Threatening, Hospitalization, Other)
  Sender: FDA-Public Use
  Company Number: DE-BRISTOL-MYERS SQUIBB COMPANY-17025727

PATIENT
  Age: 45 Year
  Sex: Female
  Weight: 60 kg

DRUGS (13)
  1. NULOJIX [Suspect]
     Indication: PROPHYLAXIS AGAINST TRANSPLANT REJECTION
     Dates: start: 20110810, end: 20120813
  2. CONTRACEPTIVE [Suspect]
     Route: 048
  3. PREDNISOLONE [Suspect]
     Dosage: 5 unit unspecified
     Route: 048
  4. MYFORTIC [Suspect]
     Dosage: 360 unit unspecified
     Route: 048
  5. HYDROCHLOROTHIAZIDE [Suspect]
     Dosage: 25 unit unspecified
     Route: 048
  6. PANTOZOL [Suspect]
     Dosage: 40 unit unspecified
     Route: 048
  7. ROCALTROL [Suspect]
     Dosage: 0.5 unit unspecified
     Route: 048
  8. FUROSEMIDE [Suspect]
     Dosage: 125 unit unspecified
     Route: 048
  9. METOPROLOL [Suspect]
     Dosage: 95 unit unspecified
     Route: 048
  10. AMLODIPINE [Suspect]
     Dosage: 10 unit unspecified
     Route: 048
  11. SEVELAMER [Suspect]
     Dosage: 800 unit unspecified
     Route: 048
  12. MOXONIDINE [Suspect]
     Dosage: 0.8 unit unspecified
     Route: 048
  13. ARANESP [Suspect]
     Dosage: 60 unit unspecified
     Route: 058

REACTIONS (7)
  - Thrombotic thrombocytopenic purpura [Recovered/Resolved]
  - Haemolytic uraemic syndrome [Unknown]
  - Malignant hypertension [Not Recovered/Not Resolved]
  - Thrombosis [Unknown]
  - Convulsion [Not Recovered/Not Resolved]
  - Renal failure [Unknown]
  - Transplant rejection [None]
